FAERS Safety Report 9563026 (Version 1)
Quarter: 2013Q3

REPORT INFORMATION
  Report Type: Spontaneous
  Country: NZ (occurrence: NZ)
  Receive Date: 20130927
  Receipt Date: 20130927
  Transmission Date: 20140515
  Serious: Yes (Other)
  Sender: FDA-Public Use
  Company Number: NZ-MYLANLABS-2013S1021101

PATIENT
  Age: 78 Year
  Sex: 0

DRUGS (3)
  1. BENZBROMARONE [Suspect]
     Indication: GOUT
     Route: 065
  2. WARFARIN [Interacting]
     Indication: ATRIAL FIBRILLATION
     Route: 065
  3. WARFARIN [Interacting]
     Indication: MITRAL VALVE REPLACEMENT
     Route: 065

REACTIONS (3)
  - International normalised ratio increased [Unknown]
  - Contusion [Unknown]
  - Drug interaction [Unknown]
